FAERS Safety Report 5700332-0 (Version None)
Quarter: 2008Q2

REPORT INFORMATION
  Report Type: 
  Country: None (occurrence: None)
  Receive Date: 20080410
  Receipt Date: 20080409
  Transmission Date: 20081010
  Serious: Yes (Other)
  Sender: FDA-Public Use
  Company Number: D0056067A

PATIENT
  Age: 39 Year
  Sex: Female
  Weight: 70 kg

DRUGS (6)
  1. ELONTRIL [Suspect]
     Route: 048
  2. EDRONAX [Suspect]
     Route: 048
  3. L-THYROXIN [Suspect]
     Route: 048
  4. LAMOTRIGINE [Suspect]
     Route: 048
  5. NITOMAN [Suspect]
     Route: 048
  6. TREVILOR [Suspect]
     Route: 048

REACTIONS (3)
  - INTENTIONAL OVERDOSE [None]
  - NO ADVERSE EVENT [None]
  - SUICIDE ATTEMPT [None]
